FAERS Safety Report 24266654 (Version 1)
Quarter: 2024Q3

REPORT INFORMATION
  Report Type: Spontaneous
  Country: CA (occurrence: CA)
  Receive Date: 20240830
  Receipt Date: 20240830
  Transmission Date: 20241016
  Serious: Yes (Hospitalization)
  Sender: UNITED THERAPEUTICS
  Company Number: CA-UNITED THERAPEUTICS-UNT-2024-026327

PATIENT
  Age: 56 Year
  Sex: Female

DRUGS (1)
  1. REMODULIN [Suspect]
     Active Substance: TREPROSTINIL
     Indication: Pulmonary arterial hypertension
     Dosage: UNK, CONTINUING

REACTIONS (4)
  - Upper respiratory tract infection [Unknown]
  - Oxygen consumption increased [Unknown]
  - Device alarm issue [Recovered/Resolved]
  - Device breakage [Recovered/Resolved]

NARRATIVE: CASE EVENT DATE: 20240821
